FAERS Safety Report 8725643 (Version 3)
Quarter: 2012Q4

REPORT INFORMATION
  Report Type: 
  Country: US (occurrence: US)
  Receive Date: 20120815
  Receipt Date: 20120831
  Transmission Date: 20130627
  Serious: Yes (Hospitalization)
  Sender: FDA-Public Use
  Company Number: US-BAXTER-2012BAX014214

PATIENT
  Age: 44 None
  Sex: Female
  Weight: 63.64 kg

DRUGS (8)
  1. ARALAST NP [Suspect]
     Indication: ALPHA-1 ANTI-TRYPSIN DEFICIENCY
     Dosage: DOSE VARIES EACH WEEK
     Route: 042
     Dates: start: 2005
  2. MORPHINE [Concomitant]
     Indication: DIFFICULTY BREATHING
     Route: 048
  3. RESTORIL [Concomitant]
     Indication: TROUBLE FALLING ASLEEP
     Route: 048
  4. VALIUM [Concomitant]
     Indication: DRUG USE FOR UNKNOWN INDICATION
     Dosage: WEEKLY ON TREATMENT DAYS
  5. SPIRIVA [Concomitant]
     Indication: DRUG USE FOR UNKNOWN INDICATION
  6. SYMBICORT [Concomitant]
     Indication: DRUG USE FOR UNKNOWN INDICATION
  7. PRO-AIR [Concomitant]
     Indication: DRUG USE FOR UNKNOWN INDICATION
  8. ATIVAN [Concomitant]
     Indication: DRUG USE FOR UNKNOWN INDICATION
     Route: 048

REACTIONS (6)
  - Pneumonia [Recovered/Resolved]
  - Pneumonia haemophilus [Recovered/Resolved]
  - Dyspnoea [Recovered/Resolved]
  - Confusional state [Recovered/Resolved]
  - Sputum discoloured [Recovered/Resolved]
  - Pruritus [Recovered/Resolved]
